FAERS Safety Report 4801660-3 (Version None)
Quarter: 2005Q3

REPORT INFORMATION
  Report Type: 
  Country: None (occurrence: None)
  Receive Date: 20050929
  Receipt Date: 20050801
  Transmission Date: 20060218
  Serious: No
  Sender: FDA-Public Use
  Company Number: 05P-163-0307078-00

PATIENT
  Age: 57 Year
  Sex: Female
  Weight: 81.6475 kg

DRUGS (8)
  1. HUMIRA [Suspect]
     Indication: RHEUMATOID ARTHRITIS
     Dosage: 40 MG, 1 IN 1 WK SUBCUTANEOUS
     Route: 058
     Dates: start: 20040201, end: 20050705
  2. PREDNISONE [Concomitant]
  3. TOPROL-XL [Concomitant]
  4. LOTREL [Concomitant]
  5. LEVOTHYROXINE SODIUM [Concomitant]
  6. ASAFEX [Concomitant]
  7. MULTI-VITAMINS [Concomitant]
  8. CALCIUM SUPPLEMENT [Concomitant]

REACTIONS (3)
  - BRONCHITIS ACUTE [None]
  - RIB FRACTURE [None]
  - UPPER RESPIRATORY TRACT INFECTION [None]
